FAERS Safety Report 10928616 (Version 2)
Quarter: 2015Q2

REPORT INFORMATION
  Report Type: Spontaneous
  Country: US (occurrence: US)
  Receive Date: 20150319
  Receipt Date: 20150524
  Transmission Date: 20150821
  Serious: Yes (Other)
  Sender: FDA-Public Use
  Company Number: US-JNJFOC-20130901933

PATIENT
  Age: 18 Year
  Sex: Female
  Weight: 59.88 kg

DRUGS (1)
  1. CONCERTA [Suspect]
     Active Substance: METHYLPHENIDATE HYDROCHLORIDE
     Indication: BRADYPHRENIA
     Dosage: IN THE MORNING
     Route: 048
     Dates: start: 20120222

REACTIONS (3)
  - Insomnia [Not Recovered/Not Resolved]
  - Product use issue [Unknown]
  - Seizure [Not Recovered/Not Resolved]

NARRATIVE: CASE EVENT DATE: 2012
